FAERS Safety Report 9232759 (Version 1)
Quarter: 2013Q1

REPORT INFORMATION
  Report Type: Spontaneous
  Country: US (occurrence: None)
  Receive Date: 20121031
  Receipt Date: 20121031
  Transmission Date: 20140127
  Serious: No
  Sender: FDA-Public Use
  Company Number: PHEH2012US011798

PATIENT
  Age: 42 Year
  Sex: Male

DRUGS (1)
  1. GILENYA (FTY) CAPSULE [Suspect]
     Route: 048

REACTIONS (3)
  - Palpitations [None]
  - Fatigue [None]
  - Malaise [None]
